FAERS Safety Report 5044845-6 (Version None)
Quarter: 2006Q2

REPORT INFORMATION
  Report Type: 
  Country: None (occurrence: None)
  Receive Date: 20060601
  Receipt Date: 20060327
  Transmission Date: 20061013
  Serious: No
  Sender: FDA-Public Use
  Company Number: 2006-BP-02448BP

PATIENT
  Age: 77 Year
  Sex: Male
  Weight: 95.25 kg

DRUGS (9)
  1. SPIRIVA [Suspect]
     Dosage: 18 MCG (18 MCG, 1 IN 1 D), IH
     Route: 055
     Dates: end: 20060215
  2. COMBIVENT (COMBIVENT /01261001/) [Concomitant]
  3. Z PACK (AZITHROMYCIN) [Concomitant]
  4. MUCINEX [Concomitant]
  5. ZOCOR [Concomitant]
  6. K-DUR 10 [Concomitant]
  7. ADVAIR (SERETIDE /01420901/) [Concomitant]
  8. LOPRESSOR (METOROLOL TARTRATE) [Concomitant]
  9. VASOTEC [Concomitant]

REACTIONS (5)
  - BRONCHOSPASM [None]
  - CHEST DISCOMFORT [None]
  - DYSPHONIA [None]
  - DYSPNOEA [None]
  - WHEEZING [None]
